FAERS Safety Report 7623478-9 (Version None)
Quarter: 2011Q3

REPORT INFORMATION
  Report Type: 
  Country: None (occurrence: None)
  Receive Date: 20110720
  Receipt Date: 20110714
  Transmission Date: 20111222
  Serious: Yes (Other)
  Sender: FDA-Public Use
  Company Number: GXKR2011DE02292

PATIENT
  Sex: Female

DRUGS (2)
  1. CERAZETTE [Concomitant]
     Route: 065
  2. CYCLOSPORINE [Suspect]
     Dosage: 100 MG, UNK
     Route: 048
     Dates: start: 20080101

REACTIONS (6)
  - MOOD ALTERED [None]
  - DISTURBANCE IN ATTENTION [None]
  - DELUSION [None]
  - SCREAMING [None]
  - AFFECT LABILITY [None]
  - PSYCHOTIC DISORDER [None]
